FAERS Safety Report 9706513 (Version 3)
Quarter: 2014Q1

REPORT INFORMATION
  Report Type: Report from Study
  Country: BR (occurrence: BR)
  Receive Date: 20131125
  Receipt Date: 20140205
  Transmission Date: 20141002
  Serious: Yes (Other)
  Sender: FDA-Public Use
  Company Number: BR-US-EMD SERONO, INC.-7204832

PATIENT
  Age: 28 Year
  Sex: Male

DRUGS (3)
  1. REBIF [Suspect]
     Indication: RELAPSING-REMITTING MULTIPLE SCLEROSIS
     Dates: start: 20060613, end: 20090322
  2. REBIF [Suspect]
     Dates: start: 20090323, end: 20130525
  3. IBUPROFEN [Concomitant]
     Indication: PRODUCT USED FOR UNKNOWN INDICATION

REACTIONS (4)
  - Myasthenia gravis [Not Recovered/Not Resolved]
  - Cough [Unknown]
  - Asthenia [Unknown]
  - Pyrexia [Unknown]
